FAERS Safety Report 17064461 (Version 2)
Quarter: 2019Q4

REPORT INFORMATION
  Report Type: Spontaneous
  Country: US (occurrence: US)
  Receive Date: 20191122
  Receipt Date: 20191202
  Transmission Date: 20200122
  Serious: No
  Sender: FDA-Public Use
  Company Number: US-PFIZER INC-2019502490

PATIENT
  Age: 60 Year
  Sex: Female

DRUGS (2)
  1. FOLIC ACID. [Suspect]
     Active Substance: FOLIC ACID
     Dosage: UNK
  2. METHOTREXATE SODIUM. [Suspect]
     Active Substance: METHOTREXATE SODIUM
     Dosage: UNK

REACTIONS (2)
  - Hyperchlorhydria [Unknown]
  - Abdominal discomfort [Unknown]
